FAERS Safety Report 8838246 (Version 1)
Quarter: 2012Q4

REPORT INFORMATION
  Report Type: Report from Study
  Country: DE (occurrence: DE)
  Receive Date: 20121012
  Receipt Date: 20121012
  Transmission Date: 20130627
  Serious: Yes (Hospitalization, Other)
  Sender: FDA-Public Use
  Company Number: DE-ROCHE-1143952

PATIENT
  Age: 57 Year
  Sex: Female
  Weight: 41 kg

DRUGS (1)
  1. ROACTEMRA [Suspect]
     Indication: RHEUMATOID ARTHRITIS
     Route: 042
     Dates: start: 20120514, end: 20120802

REACTIONS (2)
  - Pulmonary embolism [Recovered/Resolved with Sequelae]
  - Bundle branch block right [Unknown]
